FAERS Safety Report 7218327-7 (Version None)
Quarter: 2011Q1

REPORT INFORMATION
  Report Type: 
  Country: None (occurrence: None)
  Receive Date: 20110110
  Receipt Date: 20101014
  Transmission Date: 20110831
  Serious: No
  Sender: FDA-Public Use
  Company Number: US-BRISTOL-MYERS SQUIBB COMPANY-15334766

PATIENT
  Sex: Female

DRUGS (1)
  1. DESYREL [Suspect]

REACTIONS (1)
  - LACTATION DISORDER [None]
